FAERS Safety Report 6968344-7 (Version None)
Quarter: 2010Q3

REPORT INFORMATION
  Report Type: 
  Country: None (occurrence: None)
  Receive Date: 20100901
  Receipt Date: 20100816
  Transmission Date: 20110219
  Serious: Yes (Hospitalization, Other)
  Sender: FDA-Public Use
  Company Number: 2010SP012023

PATIENT
  Age: 37 Year
  Sex: Female
  Weight: 96.1626 kg

DRUGS (7)
  1. NUVARING [Suspect]
     Indication: CONTRACEPTION
     Dosage: ; QM; VAG
     Route: 067
     Dates: start: 20071201, end: 20090101
  2. NUVARING [Suspect]
     Indication: HORMONE THERAPY
     Dosage: ; QM; VAG
     Route: 067
     Dates: start: 20071201, end: 20090101
  3. IMPLANON [Suspect]
     Indication: CONTRACEPTION
     Dates: start: 20090101
  4. FIORICET [Concomitant]
  5. TOPAMAX [Concomitant]
  6. DIFLUCAN [Concomitant]
  7. ZOCOR [Concomitant]

REACTIONS (27)
  - ANAEMIA [None]
  - BLOOD CHOLESTEROL INCREASED [None]
  - CANDIDIASIS [None]
  - DERMATITIS [None]
  - DYSPNOEA [None]
  - FATIGUE [None]
  - FIBRIN D DIMER INCREASED [None]
  - FUNGAL INFECTION [None]
  - HAEMORRHAGE [None]
  - HYPERGLYCAEMIA [None]
  - HYPERLIPIDAEMIA [None]
  - HYPOAESTHESIA [None]
  - IMPAIRED WORK ABILITY [None]
  - INFECTION [None]
  - LOW DENSITY LIPOPROTEIN INCREASED [None]
  - MENORRHAGIA [None]
  - MIGRAINE [None]
  - PAIN [None]
  - PLEURISY [None]
  - PNEUMONIA [None]
  - PRURITUS [None]
  - PULMONARY EMBOLISM [None]
  - THROMBOSIS [None]
  - TREATMENT NONCOMPLIANCE [None]
  - VAGINITIS BACTERIAL [None]
  - VULVAL DISORDER [None]
  - WEIGHT INCREASED [None]
